FAERS Safety Report 8162657-1 (Version None)
Quarter: 2012Q1

REPORT INFORMATION
  Report Type: 
  Country: None (occurrence: None)
  Receive Date: 20120103
  Receipt Date: 20111116
  Transmission Date: 20120608
  Serious: No
  Sender: FDA-Public Use
  Company Number: AE-2011-003610

PATIENT
  Age: 58 Year
  Sex: Female
  Weight: 64.4108 kg

DRUGS (3)
  1. PEGASYS [Concomitant]
  2. INCIVEK [Suspect]
     Dosage: 2250 MG (750 MG, 1IN 8 HR),ORAL
     Route: 048
     Dates: start: 20111111
  3. RIBAVIRIN [Concomitant]

REACTIONS (2)
  - HEADACHE [None]
  - DYSGEUSIA [None]
